FAERS Safety Report 12295874 (Version 1)
Quarter: 2016Q2

REPORT INFORMATION
  Report Type: Spontaneous
  Country: US (occurrence: None)
  Receive Date: 20160421
  Receipt Date: 20160421
  Transmission Date: 20160815
  Serious: Yes (Hospitalization)
  Sender: FDA-Public Use
  Company Number: None

PATIENT
  Age: 43 Year
  Sex: Female
  Weight: 87.5 kg

DRUGS (13)
  1. HYDROCHLOROTHIAZIDE. [Concomitant]
     Active Substance: HYDROCHLOROTHIAZIDE
  2. MILK THISTLE [Concomitant]
     Active Substance: MILK THISTLE
  3. NOVOLOG [Concomitant]
     Active Substance: INSULIN ASPART
  4. MULTIVITAMIN [Concomitant]
     Active Substance: VITAMINS
  5. EFFEXOR [Concomitant]
     Active Substance: VENLAFAXINE HYDROCHLORIDE
  6. METOPROLOL SUCCINATE. [Concomitant]
     Active Substance: METOPROLOL SUCCINATE
  7. PASIREOTIDE NOVARTIS [Suspect]
     Active Substance: PASIREOTIDE
     Dosage: 60 MG EVERY 28 DAYS INTRAMUSCULAR
     Route: 030
     Dates: start: 20141216, end: 20160209
  8. LISINOPRIL. [Concomitant]
     Active Substance: LISINOPRIL
  9. PREVACID [Concomitant]
     Active Substance: LANSOPRAZOLE
  10. PASIREOTIDE [Concomitant]
     Active Substance: PASIREOTIDE
  11. PREVACID [Concomitant]
     Active Substance: LANSOPRAZOLE
  12. LANTUS SOLOSTAR [Concomitant]
     Active Substance: INSULIN GLARGINE
  13. ACETAMINOPHEN\HYDROCODONE BITARTRATE [Concomitant]
     Active Substance: ACETAMINOPHEN\HYDROCODONE BITARTRATE

REACTIONS (1)
  - Acute kidney injury [None]

NARRATIVE: CASE EVENT DATE: 20160414
